FAERS Safety Report 15284391 (Version 2)
Quarter: 2018Q3

REPORT INFORMATION
  Report Type: Spontaneous
  Country: US (occurrence: US)
  Receive Date: 20180816
  Receipt Date: 20180820
  Transmission Date: 20181010
  Serious: No
  Sender: FDA-Public Use
  Company Number: PHEH2018US032887

PATIENT
  Sex: Male

DRUGS (2)
  1. AMANTADINE. [Suspect]
     Active Substance: AMANTADINE HYDROCHLORIDE
     Indication: DYSKINESIA
     Dosage: UNK
     Route: 065
  2. AMANTADINE. [Suspect]
     Active Substance: AMANTADINE HYDROCHLORIDE
     Dosage: UNK
     Route: 065
     Dates: start: 20180629, end: 20180703

REACTIONS (6)
  - Diarrhoea [Unknown]
  - Malaise [Unknown]
  - Dysarthria [Unknown]
  - Dizziness [Unknown]
  - Fatigue [Unknown]
  - Gastroenteritis viral [Unknown]
